FAERS Safety Report 4503412-0 (Version None)
Quarter: 2004Q4

REPORT INFORMATION
  Report Type: 
  Country: None (occurrence: None)
  Receive Date: 20041117
  Receipt Date: 20041108
  Transmission Date: 20050328
  Serious: Yes (Hospitalization)
  Sender: FDA-Public Use
  Company Number: PT-GLAXOSMITHKLINE-B0357166A

PATIENT
  Age: 22 Year
  Sex: Male

DRUGS (6)
  1. AMOXICILLIN + CLAVULANIC ACID [Suspect]
     Indication: TOOTH INFECTION
     Dosage: 200MG PER DAY
     Route: 048
     Dates: start: 20041008
  2. TRAMADOL HCL [Suspect]
     Indication: TOOTHACHE
     Dosage: 50MG PER DAY
     Route: 048
     Dates: start: 20041008
  3. LORNOXICAM [Suspect]
     Indication: TOOTHACHE
     Dosage: 8MG PER DAY
     Route: 048
     Dates: start: 20041008
  4. NIMESULIDE [Concomitant]
     Indication: TOOTHACHE
     Route: 048
  5. ACETAMINOPHEN [Concomitant]
     Route: 048
  6. DICLOFENAC [Concomitant]
     Route: 048

REACTIONS (3)
  - DIZZINESS [None]
  - NAUSEA [None]
  - PARAESTHESIA [None]
